FAERS Safety Report 8069262-6 (Version None)
Quarter: 2012Q1

REPORT INFORMATION
  Report Type: 
  Country: None (occurrence: None)
  Receive Date: 20120125
  Receipt Date: 20120116
  Transmission Date: 20120608
  Serious: Yes (Hospitalization)
  Sender: FDA-Public Use
  Company Number: US-JNJFOC-20120106154

PATIENT
  Sex: Male
  Weight: 104.33 kg

DRUGS (3)
  1. REMICADE [Suspect]
     Indication: COLITIS ULCERATIVE
     Route: 042
     Dates: start: 20110101, end: 20111101
  2. PENTASA [Concomitant]
     Indication: COLITIS
     Route: 048
     Dates: start: 20060101, end: 20111201
  3. AZATHIOPRINE [Concomitant]
     Indication: COLITIS
     Route: 048
     Dates: start: 20100101, end: 20111001

REACTIONS (3)
  - COLITIS [None]
  - THERAPEUTIC RESPONSE DELAYED [None]
  - COLITIS ULCERATIVE [None]
